FAERS Safety Report 25527356 (Version 1)
Quarter: 2025Q3

REPORT INFORMATION
  Report Type: Report from Study
  Country: EU (occurrence: EU)
  Receive Date: 20250708
  Receipt Date: 20250708
  Transmission Date: 20251021
  Serious: Yes (Other)
  Sender: IDORSIA PHARMACEUTICALS
  Company Number: EU-IDORSIA-011050-2025-ES

PATIENT
  Age: 32 Year
  Sex: Female

DRUGS (2)
  1. QUVIVIQ [Suspect]
     Active Substance: DARIDOREXANT
     Indication: Insomnia
     Route: 065
  2. QUVIVIQ [Suspect]
     Active Substance: DARIDOREXANT
     Route: 065

REACTIONS (13)
  - Paralysis [Recovered/Resolved]
  - Drug ineffective [Unknown]
  - Tremor [Recovering/Resolving]
  - Chills [Recovered/Resolved]
  - Headache [Recovering/Resolving]
  - Tinnitus [Recovering/Resolving]
  - Hyperhidrosis [Unknown]
  - Paranoia [Unknown]
  - Vision blurred [Recovering/Resolving]
  - Dizziness [Recovering/Resolving]
  - Nausea [Recovering/Resolving]
  - Fatigue [Recovering/Resolving]
  - Sleep paralysis [Recovered/Resolved]
